FAERS Safety Report 6816327-X (Version None)
Quarter: 2010Q3

REPORT INFORMATION
  Report Type: 
  Country: None (occurrence: None)
  Receive Date: 20100705
  Receipt Date: 20100621
  Transmission Date: 20110219
  Serious: Yes (Hospitalization, Other)
  Sender: FDA-Public Use
  Company Number: PHHY2009DE46904

PATIENT
  Age: 73 Year
  Sex: Male

DRUGS (8)
  1. RASILEZ [Suspect]
     Indication: HYPERTENSION
     Dosage: 300 MG/DAY
     Route: 048
     Dates: start: 20081007, end: 20100120
  2. AMLOBETA [Concomitant]
     Dosage: 1 DF, QD
     Dates: start: 20050101
  3. BISOHEXAL [Concomitant]
     Dosage: 0.5 DF, QD
     Dates: start: 20050101
  4. ASPIRIN [Concomitant]
     Indication: CAROTID ARTERY STENOSIS
     Dosage: 100 MG/DAY
     Route: 048
  5. AMLODIPINE [Concomitant]
     Indication: HYPERTENSION
     Dosage: 5 MG/DAY
     Route: 048
     Dates: start: 20080118
  6. BISOPROLOL [Concomitant]
     Indication: HYPERTENSION
     Dosage: 5 MG/DAY
     Route: 048
     Dates: start: 20060721
  7. LEVOTHYROXINE SODIUM [Concomitant]
     Indication: THYROID OPERATION
     Dosage: 100 UG/DAY
     Route: 048
     Dates: start: 20020101
  8. PIRETANIDE [Concomitant]
     Indication: HYPERTENSION
     Dosage: 6 UG/DAY
     Route: 048
     Dates: start: 20091217, end: 20091223

REACTIONS (8)
  - ALANINE AMINOTRANSFERASE INCREASED [None]
  - ASPARTATE AMINOTRANSFERASE INCREASED [None]
  - GAMMA-GLUTAMYLTRANSFERASE INCREASED [None]
  - HYPERTHYROIDISM [None]
  - LIPASE INCREASED [None]
  - LIVER FUNCTION TEST ABNORMAL [None]
  - THYROID OPERATION [None]
  - THYROIDECTOMY [None]
